FAERS Safety Report 22019415 (Version 1)
Quarter: 2023Q1

REPORT INFORMATION
  Report Type: Spontaneous
  Country: GB (occurrence: GB)
  Receive Date: 20230222
  Receipt Date: 20230222
  Transmission Date: 20230417
  Serious: Yes (Other)
  Sender: FDA-Public Use
  Company Number: GB-MLMSERVICE-2023020340835641

PATIENT
  Age: 51 Year
  Sex: Female

DRUGS (2)
  1. CARBOPLATIN [Suspect]
     Active Substance: CARBOPLATIN
     Indication: Malignant anorectal neoplasm
     Dosage: CUMULATIVE DOSE: 01 CYCLICAL.
  2. PACLITAXEL [Suspect]
     Active Substance: PACLITAXEL
     Indication: Malignant anorectal neoplasm
     Dosage: CUMULATIVE DOSE: 01 CYCLICAL

REACTIONS (3)
  - Acute kidney injury [Unknown]
  - Anaemia [Unknown]
  - Off label use [Unknown]
